FAERS Safety Report 8556593-6 (Version None)
Quarter: 2012Q3

REPORT INFORMATION
  Report Type: 
  Country: None (occurrence: None)
  Receive Date: 20120801
  Receipt Date: 20120726
  Transmission Date: 20120928
  Serious: Yes (Other)
  Sender: FDA-Public Use
  Company Number: JP-SP-2012-07245

PATIENT

DRUGS (1)
  1. IMMUCYST [Suspect]
     Indication: PRODUCT USED FOR UNKNOWN INDICATION
     Route: 043

REACTIONS (3)
  - HAEMATURIA [None]
  - DYSURIA [None]
  - BOVINE TUBERCULOSIS [None]
